FAERS Safety Report 4815573-4 (Version None)
Quarter: 2005Q4

REPORT INFORMATION
  Report Type: 
  Country: None (occurrence: None)
  Receive Date: 20051027
  Receipt Date: 20051027
  Transmission Date: 20060501
  Serious: Yes (Other)
  Sender: FDA-Public Use
  Company Number: None

PATIENT
  Age: 7 Year
  Sex: Male
  Weight: 28 kg

DRUGS (5)
  1. SINGULAIR [Suspect]
     Indication: RHINITIS ALLERGIC
     Dosage: ORAL, DAILY
     Route: 048
     Dates: start: 20050501, end: 20051001
  2. NASONEX [Concomitant]
  3. ZADITOR [Concomitant]
  4. ELOCON [Concomitant]
  5. PROTOPIC [Concomitant]

REACTIONS (2)
  - ABNORMAL DREAMS [None]
  - DELUSION [None]
